FAERS Safety Report 5267969-7 (Version None)
Quarter: 2007Q1

REPORT INFORMATION
  Report Type: 
  Country: None (occurrence: None)
  Receive Date: 20061211
  Receipt Date: 20051202
  Transmission Date: 20070707
  Serious: Yes (Hospitalization)
  Sender: FDA-Public Use
  Company Number: ENTC2005-0336

PATIENT
  Age: 69 Year
  Sex: Male
  Weight: 106.4 kg

DRUGS (9)
  1. STALEVO 100 [Suspect]
     Indication: PARKINSON'S DISEASE
     Dosage: ORAL
     Route: 048
     Dates: start: 20050920, end: 20051012
  2. SINEMET [Concomitant]
  3. KEMADRIN [Concomitant]
  4. DOXEPIN HCL [Concomitant]
  5. MIRAPEX [Concomitant]
  6. VERAPAMIL [Concomitant]
  7. CAPTOPRIL [Concomitant]
  8. POTASSIUM ACETATE [Concomitant]
  9. FUROSEMIDE [Concomitant]

REACTIONS (1)
  - TREMOR [None]
